FAERS Safety Report 6081389-7 (Version None)
Quarter: 2009Q1

REPORT INFORMATION
  Report Type: 
  Country: None (occurrence: None)
  Receive Date: 20090213
  Receipt Date: 20090128
  Transmission Date: 20090719
  Serious: Yes (Other)
  Sender: FDA-Public Use
  Company Number: 8042592

PATIENT
  Age: 10 Year
  Sex: Male

DRUGS (4)
  1. KEPPRA [Suspect]
     Indication: EPILEPSY
     Dosage: PO
     Route: 048
  2. DEPAKENE [Suspect]
     Dosage: PO
     Route: 048
     Dates: end: 20081001
  3. NEURONTIN [Suspect]
     Dosage: PO
     Route: 048
     Dates: end: 20081201
  4. RIVOTRIL [Suspect]
     Dosage: PO
     Route: 048

REACTIONS (11)
  - BLOOD BICARBONATE DECREASED [None]
  - BLOOD CALCIUM DECREASED [None]
  - BLOOD CREATININE INCREASED [None]
  - BLOOD GLUCOSE INCREASED [None]
  - BLOOD PH DECREASED [None]
  - BLOOD PHOSPHORUS DECREASED [None]
  - BLOOD POTASSIUM DECREASED [None]
  - BLOOD SODIUM INCREASED [None]
  - LARGE INTESTINE PERFORATION [None]
  - PANCREATITIS ACUTE [None]
  - RENAL TUBULAR DISORDER [None]
